FAERS Safety Report 5202555-6 (Version None)
Quarter: 2007Q1

REPORT INFORMATION
  Report Type: 
  Country: None (occurrence: None)
  Receive Date: 20070109
  Receipt Date: 20070102
  Transmission Date: 20070707
  Serious: Yes (Hospitalization)
  Sender: FDA-Public Use
  Company Number: DE-SANOFI-SYNTHELABO-F04200700001

PATIENT
  Age: 84 Year
  Sex: Male
  Weight: 69 kg

DRUGS (9)
  1. DEXAMETHASONE [Concomitant]
     Dosage: UNK
     Route: 065
  2. ZOFRAN [Concomitant]
     Indication: PREMEDICATION
     Dosage: UNK
     Route: 065
  3. NAVOBAN [Concomitant]
     Indication: PREMEDICATION
     Dosage: UNK
     Route: 065
  4. KEVATRIL [Concomitant]
     Indication: PREMEDICATION
     Dosage: UNK
     Route: 065
  5. METOCLOPRAMIDE [Concomitant]
     Indication: PREMEDICATION
     Dosage: AS NEEDED
     Route: 048
  6. PASPERTIN [Concomitant]
     Indication: PREMEDICATION
     Dosage: UNK
     Route: 065
  7. FOLINIC ACID [Suspect]
     Indication: RECTAL CANCER
     Route: 041
     Dates: start: 20060905, end: 20060905
  8. FLUOROURACIL [Suspect]
     Indication: RECTAL CANCER
     Route: 041
     Dates: start: 20060905, end: 20060905
  9. ELOXATIN [Suspect]
     Indication: RECTAL CANCER
     Route: 041
     Dates: start: 20060905, end: 20060905

REACTIONS (2)
  - GENERAL PHYSICAL HEALTH DETERIORATION [None]
  - NEOPLASM PROGRESSION [None]
